FAERS Safety Report 7716766-9 (Version None)
Quarter: 2011Q3

REPORT INFORMATION
  Report Type: 
  Country: None (occurrence: None)
  Receive Date: 20110829
  Receipt Date: 20110824
  Transmission Date: 20111222
  Serious: Yes (Congenital Anomaly, Other)
  Sender: FDA-Public Use
  Company Number: GB-ASTRAZENECA-2011SE51078

PATIENT

DRUGS (8)
  1. SEROQUEL XR [Suspect]
     Indication: SCHIZOAFFECTIVE DISORDER
     Route: 064
  2. FUROSEMIDE [Concomitant]
     Route: 064
  3. VALPROATE SODIUM [Concomitant]
     Route: 064
  4. SANDO K [Concomitant]
     Route: 064
  5. ENOXAPARIN SODIUM [Concomitant]
     Route: 064
  6. SEROQUEL XR [Suspect]
     Route: 064
  7. RANITIDINE [Concomitant]
     Route: 064
  8. HYDRALAZINE HCL [Concomitant]
     Route: 064

REACTIONS (1)
  - FALLOT'S TETRALOGY [None]
